FAERS Safety Report 6644852-3 (Version None)
Quarter: 2010Q1

REPORT INFORMATION
  Report Type: 
  Country: None (occurrence: None)
  Receive Date: 20100317
  Receipt Date: 20100301
  Transmission Date: 20100710
  Serious: Yes (Hospitalization, Disabling)
  Sender: FDA-Public Use
  Company Number: 2009SP017681

PATIENT
  Age: 41 Year
  Sex: Female
  Weight: 47.6277 kg

DRUGS (7)
  1. NUVARING [Suspect]
     Indication: MENSTRUAL CYCLE MANAGEMENT
     Dosage: 1 DF;QM; VAG
     Route: 067
     Dates: start: 20050101
  2. TOPAMAX [Concomitant]
  3. NASACORT [Concomitant]
  4. AMITRIPTYLINE [Concomitant]
  5. MAXALT [Concomitant]
  6. PARAFON FORTE [Concomitant]
  7. TYLENOL-500 [Concomitant]

REACTIONS (10)
  - CEREBROVASCULAR ACCIDENT [None]
  - CONVULSION [None]
  - DEPRESSED LEVEL OF CONSCIOUSNESS [None]
  - DEPRESSION [None]
  - DYSPHAGIA [None]
  - MASS [None]
  - PROTEIN C INCREASED [None]
  - PROTEIN S DECREASED [None]
  - UPPER LIMB FRACTURE [None]
  - VAGINAL DISCHARGE [None]
